FAERS Safety Report 5824381-7 (Version None)
Quarter: 2008Q3

REPORT INFORMATION
  Report Type: 
  Country: None (occurrence: None)
  Receive Date: 20080728
  Receipt Date: 20080721
  Transmission Date: 20090109
  Serious: Yes (Hospitalization)
  Sender: FDA-Public Use
  Company Number: BR-AVENTIS-200817030GDDC

PATIENT
  Age: 19 Year
  Sex: Male
  Weight: 55 kg

DRUGS (4)
  1. LANTUS [Suspect]
     Route: 058
  2. LANTUS [Suspect]
     Route: 058
     Dates: start: 20080101
  3. TEGRETOL [Concomitant]
     Route: 048
  4. BACLOFEN [Concomitant]
     Route: 048

REACTIONS (2)
  - IMMUNE SYSTEM DISORDER [None]
  - PHARYNGITIS [None]
